FAERS Safety Report 14718084 (Version 2)
Quarter: 2019Q4

REPORT INFORMATION
  Report Type: Spontaneous
  Country: US (occurrence: US)
  Receive Date: 20180404
  Receipt Date: 20191202
  Transmission Date: 20200122
  Serious: No
  Sender: FDA-Public Use
  Company Number: US-SA-2018SA034594

PATIENT
  Age: 33 Year
  Sex: Female
  Weight: 59.8 kg

DRUGS (4)
  1. ZYRTEC [Concomitant]
     Active Substance: CETIRIZINE HYDROCHLORIDE
     Indication: RHINITIS ALLERGIC
     Dosage: 1 DF,UNK
     Route: 065
     Dates: start: 2015
  2. IBUPROFEN. [Concomitant]
     Active Substance: IBUPROFEN
     Indication: HEADACHE
     Dosage: 1 DF,PRN
     Route: 065
     Dates: start: 2012
  3. DUPIXENT [Suspect]
     Active Substance: DUPILUMAB
     Indication: DERMATITIS ATOPIC
     Dosage: 300 MG,QOW
     Route: 065
     Dates: start: 20170408
  4. ALLEGRA [Concomitant]
     Active Substance: FEXOFENADINE HYDROCHLORIDE
     Indication: RHINITIS ALLERGIC
     Dosage: UNK UNK,UNK
     Route: 065
     Dates: start: 20171204

REACTIONS (4)
  - Pruritus [Recovered/Resolved]
  - Eye irritation [Recovered/Resolved]
  - Conjunctivitis allergic [Recovered/Resolved]
  - Cheilitis [Unknown]

NARRATIVE: CASE EVENT DATE: 20180128
